FAERS Safety Report 8984690 (Version 1)
Quarter: 2012Q4

REPORT INFORMATION
  Report Type: Spontaneous
  Country: FR (occurrence: None)
  Receive Date: 20121217
  Receipt Date: 20121217
  Transmission Date: 20130627
  Serious: Yes (Other)
  Sender: FDA-Public Use
  Company Number: 7179972

PATIENT
  Age: 58 Year
  Sex: Female

DRUGS (4)
  1. LEVOTHYROX [Suspect]
     Indication: DRUG USE FOR UNKNOWN INDICATION
     Dosage: several tablets suspected
     Route: 048
     Dates: start: 20121203, end: 20121203
  2. THERALENE [Suspect]
     Indication: DRUG USE FOR UNKNOWN INDICATION
     Dosage: SEVERAL TABLETS SUSPECTED
     Dates: start: 20121203, end: 20121203
  3. IMOVANE [Suspect]
     Indication: DRUG USE FOR UNKNOWN INDICATION
     Dosage: several tablets suspected
     Dates: start: 20121203, end: 20121203
  4. LEXOMIL [Suspect]
     Indication: DRUG USE FOR UNKNOWN INDICATION
     Dosage: several tablets suspected
     Dates: start: 20121203, end: 20121203

REACTIONS (2)
  - Hypersomnia [None]
  - Overdose [None]
